FAERS Safety Report 6774727-0 (Version None)
Quarter: 2010Q2

REPORT INFORMATION
  Report Type: 
  Country: None (occurrence: None)
  Receive Date: 20100616
  Receipt Date: 20100616
  Transmission Date: 20101027
  Serious: Yes (Hospitalization)
  Sender: FDA-Public Use
  Company Number: None

PATIENT
  Age: 22 Year
  Sex: Female
  Weight: 170.5525 kg

DRUGS (1)
  1. LAMOTRIGINE [Suspect]
     Indication: BIPOLAR DISORDER
     Dosage: 100MG DAILY PO
     Route: 048
     Dates: start: 20090801

REACTIONS (5)
  - BLISTER [None]
  - IMPAIRED HEALING [None]
  - PAIN [None]
  - PHOTOSENSITIVITY REACTION [None]
  - SUNBURN [None]
